FAERS Safety Report 10481619 (Version 3)
Quarter: 2014Q4

REPORT INFORMATION
  Report Type: Spontaneous
  Country: DK (occurrence: DK)
  Receive Date: 20140929
  Receipt Date: 20141209
  Transmission Date: 20150528
  Serious: Yes (Hospitalization)
  Sender: FDA-Public Use
  Company Number: DK-NOVOPROD-422793

PATIENT
  Age: 72 Year
  Sex: Male
  Weight: 82 kg

DRUGS (9)
  1. SIMVASTATIN. [Concomitant]
     Active Substance: SIMVASTATIN
     Route: 065
  2. CENTYL [Concomitant]
     Route: 065
  3. VICTOZA [Suspect]
     Active Substance: LIRAGLUTIDE
     Dosage: 18 UNITS
     Route: 065
     Dates: end: 20140604
  4. AMLODIPIN                          /00972401/ [Concomitant]
     Active Substance: AMLODIPINE BESYLATE
     Route: 065
  5. VICTOZA [Suspect]
     Active Substance: LIRAGLUTIDE
     Indication: PRODUCT USED FOR UNKNOWN INDICATION
     Dosage: 4 UNITS
     Route: 065
     Dates: start: 20140422
  6. VICTOZA [Suspect]
     Active Substance: LIRAGLUTIDE
     Dosage: 8 UNITS
     Route: 065
  7. METFORMIN [Concomitant]
     Active Substance: METFORMIN HYDROCHLORIDE
     Dosage: 500 MG, QID
     Route: 065
  8. CARDIOSTAD                         /00894001/ [Concomitant]
     Active Substance: LISINOPRIL
     Route: 065
  9. MAREVAN [Concomitant]
     Active Substance: WARFARIN SODIUM
     Route: 065

REACTIONS (10)
  - Asthenia [Recovered/Resolved]
  - Somnolence [Recovered/Resolved]
  - Vomiting [Unknown]
  - Weight decreased [Recovered/Resolved]
  - Decreased appetite [Recovered/Resolved]
  - Discomfort [Recovered/Resolved]
  - Dizziness [Recovered/Resolved]
  - Blood glucose fluctuation [Recovered/Resolved]
  - Fluid intake reduced [Recovered/Resolved]
  - Nausea [Unknown]

NARRATIVE: CASE EVENT DATE: 201405
